FAERS Safety Report 7365900-1 (Version None)
Quarter: 2011Q1

REPORT INFORMATION
  Report Type: 
  Country: None (occurrence: None)
  Receive Date: 20110322
  Receipt Date: 20110301
  Transmission Date: 20110831
  Serious: Yes (Other)
  Sender: FDA-Public Use
  Company Number: US-AMGEN-USASP2011011767

PATIENT
  Age: 61 Year
  Weight: 82.993 kg

DRUGS (3)
  1. HUMIRA [Concomitant]
     Dosage: 40 MG, Q2WK
     Route: 058
     Dates: start: 20070101
  2. ENBREL [Suspect]
     Indication: RHEUMATOID ARTHRITIS
     Dosage: UNK
     Dates: start: 19990101, end: 20060101
  3. METHOTREXATE [Concomitant]
     Dosage: 15 MG, QWK

REACTIONS (7)
  - DIZZINESS [None]
  - SPUTUM DISCOLOURED [None]
  - VISUAL IMPAIRMENT [None]
  - INJECTION SITE REACTION [None]
  - COUGH [None]
  - UPPER RESPIRATORY TRACT INFECTION [None]
  - DRUG INEFFECTIVE [None]
